FAERS Safety Report 4903323-2 (Version None)
Quarter: 2006Q1

REPORT INFORMATION
  Report Type: 
  Country: None (occurrence: None)
  Receive Date: 20060206
  Receipt Date: 20060206
  Transmission Date: 20060701
  Serious: Yes (Other)
  Sender: FDA-Public Use
  Company Number: None

PATIENT
  Age: 16 Year
  Sex: Male
  Weight: 53.978 kg

DRUGS (4)
  1. ALBUTEROL [Suspect]
     Indication: ASTHMA
     Dosage: 2 PUFFS 4 TIMES A DAY INHAL
     Route: 055
     Dates: start: 20060118, end: 20060127
  2. ALBUTEROL [Suspect]
     Indication: HYPERSENSITIVITY
     Dosage: 2 PUFFS 4 TIMES A DAY INHAL
     Route: 055
     Dates: start: 20060118, end: 20060127
  3. ALBUTEROL [Suspect]
     Indication: ASTHMA
     Dosage: 2 PUFFS 4 TIMES A DAY INHAL
     Route: 055
     Dates: start: 20060128, end: 20060201
  4. ALBUTEROL [Suspect]
     Indication: HYPERSENSITIVITY
     Dosage: 2 PUFFS 4 TIMES A DAY INHAL
     Route: 055
     Dates: start: 20060128, end: 20060201

REACTIONS (4)
  - DEVICE FAILURE [None]
  - INSOMNIA [None]
  - OVERDOSE [None]
  - PHARMACEUTICAL PRODUCT COMPLAINT [None]
